FAERS Safety Report 23143581 (Version 1)
Quarter: 2023Q4

REPORT INFORMATION
  Report Type: Report from Study
  Country: US (occurrence: None)
  Receive Date: 20231103
  Receipt Date: 20231103
  Transmission Date: 20240110
  Serious: Yes (Hospitalization)
  Sender: FDA-Public Use
  Company Number: US-ROCHE-3252661

PATIENT
  Age: 68 Year
  Sex: Male
  Weight: 75.8 kg

DRUGS (15)
  1. GLOFITAMAB [Suspect]
     Active Substance: GLOFITAMAB
     Indication: B-cell lymphoma
     Dosage: ON 13/DEC/2022, HE RECEIVED MOST RECENT DOSE OF 30 MG PRIOR TO AE/SAE ONSET.
     Route: 042
     Dates: start: 20221129
  2. OBINUTUZUMAB [Suspect]
     Active Substance: OBINUTUZUMAB
     Indication: B-cell lymphoma
     Dosage: START DATE AND END DATE OF MOST RECENT DOSE (1000 MG) OF STUDY DRUG PRIOR TO AE/SAE: 21/NOV/2022 AT
     Route: 042
     Dates: start: 20221121
  3. FLUDEOXYGLUCOSE F-18 [Suspect]
     Active Substance: FLUDEOXYGLUCOSE F-18
     Indication: B-cell lymphoma
     Dosage: START DATE OF MOST RECENT DOSE (250 ML) OF STUDY DRUG PRIOR TO AE/SAE: 08/NOV/2022 AT 4.53 PM
     Route: 042
     Dates: start: 20221108
  4. ACETAMINOPHEN [Concomitant]
     Active Substance: ACETAMINOPHEN
     Route: 048
     Dates: start: 20221121, end: 20221228
  5. DEXAMETHASONE [Concomitant]
     Active Substance: DEXAMETHASONE
     Route: 042
     Dates: start: 20221121, end: 20221228
  6. DIPHENHYDRAMINE [Concomitant]
     Active Substance: DIPHENHYDRAMINE
     Route: 048
     Dates: start: 20221121, end: 20221228
  7. CHOLECALCIFEROL [Concomitant]
     Active Substance: CHOLECALCIFEROL
     Indication: Vitamin D deficiency
     Dosage: 20000 U
     Route: 048
     Dates: start: 20220304
  8. DAPSONE [Concomitant]
     Active Substance: DAPSONE
     Indication: Infection
     Route: 048
     Dates: start: 20221028
  9. FAMOTIDINE [Concomitant]
     Active Substance: FAMOTIDINE
  10. FLUCONAZOLE [Concomitant]
     Active Substance: FLUCONAZOLE
  11. HYDROCORTISONE [Concomitant]
     Active Substance: HYDROCORTISONE
  12. PREGABALIN [Concomitant]
     Active Substance: PREGABALIN
  13. VALACYCLOVIR [Concomitant]
     Active Substance: VALACYCLOVIR HYDROCHLORIDE
  14. ALLOPURINOL [Concomitant]
     Active Substance: ALLOPURINOL
  15. LEVOTHYROXINE [Concomitant]
     Active Substance: LEVOTHYROXINE

REACTIONS (1)
  - Arthritis infective [Recovered/Resolved]

NARRATIVE: CASE EVENT DATE: 20221222
